FAERS Safety Report 15713436 (Version 1)
Quarter: 2018Q4

REPORT INFORMATION
  Report Type: Spontaneous
  Country: US (occurrence: US)
  Receive Date: 20181212
  Receipt Date: 20181212
  Transmission Date: 20190205
  Serious: No
  Sender: FDA-Public Use
  Company Number: US-GLAXOSMITHKLINE-US2018221909

PATIENT

DRUGS (1)
  1. ALLI [Suspect]
     Active Substance: ORLISTAT
     Indication: WEIGHT LOSS DIET
     Dosage: UNK

REACTIONS (8)
  - Malaise [Unknown]
  - Influenza like illness [Unknown]
  - Migraine [Unknown]
  - Flatulence [Unknown]
  - Cold sweat [Unknown]
  - Abdominal distension [Unknown]
  - Pain [Unknown]
  - Nausea [Unknown]
